FAERS Safety Report 5611505-X (Version None)
Quarter: 2008Q1

REPORT INFORMATION
  Report Type: 
  Country: None (occurrence: None)
  Receive Date: 20080201
  Receipt Date: 20080121
  Transmission Date: 20080703
  Serious: Yes (Hospitalization)
  Sender: FDA-Public Use
  Company Number: FR-PFIZER INC-2008006763

PATIENT
  Sex: Female

DRUGS (6)
  1. SOLU-MEDROL [Suspect]
     Indication: PREMEDICATION
     Route: 042
     Dates: start: 20070807, end: 20070807
  2. CETUXIMAB [Suspect]
     Indication: COLORECTAL CANCER
     Route: 042
     Dates: start: 20070807, end: 20070807
  3. ELOXATIN [Suspect]
     Indication: COLORECTAL CANCER
     Route: 042
     Dates: start: 20070807, end: 20070807
  4. FLUOROURACIL [Suspect]
     Indication: PREMEDICATION
     Route: 042
     Dates: start: 20070807, end: 20070807
  5. ZOPHREN [Suspect]
     Indication: PREMEDICATION
     Route: 042
     Dates: start: 20070807, end: 20070807
  6. POLARAMINE [Suspect]
     Indication: PREMEDICATION
     Route: 042
     Dates: start: 20070807, end: 20070807

REACTIONS (2)
  - DIPLOPIA [None]
  - LARYNGEAL DYSPNOEA [None]
